FAERS Safety Report 7824152-6 (Version None)
Quarter: 2011Q4

REPORT INFORMATION
  Report Type: 
  Country: None (occurrence: None)
  Receive Date: 20111019
  Receipt Date: 20111006
  Transmission Date: 20120403
  Serious: Yes (Death, Other)
  Sender: FDA-Public Use
  Company Number: DE-ACTELION-A-US2011-55142

PATIENT

DRUGS (1)
  1. VENTAVIS [Suspect]
     Indication: PRODUCT USED FOR UNKNOWN INDICATION
     Dosage: UNK
     Route: 055
     Dates: start: 20081125

REACTIONS (1)
  - PULMONARY HAEMORRHAGE [None]
